FAERS Safety Report 17045706 (Version 1)
Quarter: 2019Q4

REPORT INFORMATION
  Report Type: Spontaneous
  Country: CN (occurrence: CN)
  Receive Date: 20191118
  Receipt Date: 20191118
  Transmission Date: 20200122
  Serious: Yes (Other)
  Sender: FDA-Public Use
  Company Number: CN-BAXTER-2019BAX022945

PATIENT
  Age: 41 Year
  Sex: Female
  Weight: 50 kg

DRUGS (4)
  1. 0.9% SODIUM CHLORIDE INJECTION [Suspect]
     Active Substance: SODIUM CHLORIDE
     Indication: MEDICATION DILUTION
     Dosage: ENDOXAN 0.9 G + SODIUM CHLORIDE INJECTION
     Route: 041
     Dates: start: 20190510, end: 20190510
  2. SODIUM CHLORIDE. [Suspect]
     Active Substance: SODIUM CHLORIDE
     Indication: MEDICATION DILUTION
     Dosage: PHARMORUBICIN RD 130 MG + SODIUM CHLORIDE INJECTION
     Route: 041
     Dates: start: 20190510, end: 20190510
  3. ENDOXAN [Suspect]
     Active Substance: CYCLOPHOSPHAMIDE
     Indication: INVASIVE BREAST CARCINOMA
     Dosage: ENDOXAN + SODIUM CHLORIDE INJECTION 100 ML
     Route: 041
     Dates: start: 20190510, end: 20190510
  4. PHARMORUBICIN RD [Suspect]
     Active Substance: EPIRUBICIN
     Indication: INVASIVE BREAST CARCINOMA
     Dosage: PHARMORUBICIN RD + SODIUM CHLORIDE INJECTION 100 ML
     Route: 041
     Dates: start: 20190510, end: 20190510

REACTIONS (1)
  - Bone marrow failure [Recovered/Resolved]

NARRATIVE: CASE EVENT DATE: 20190522
